FAERS Safety Report 7261246-0 (Version None)
Quarter: 2011Q1

REPORT INFORMATION
  Report Type: 
  Country: None (occurrence: None)
  Receive Date: 20110130
  Receipt Date: 20100920
  Transmission Date: 20110831
  Serious: Yes (Other)
  Sender: FDA-Public Use
  Company Number: US-ABBOTT-10P-163-0672150-00

PATIENT
  Age: 44 Year
  Sex: Male

DRUGS (9)
  1. HUMIRA [Suspect]
     Dates: start: 20100801
  2. HUMIRA [Suspect]
     Indication: CROHN'S DISEASE
     Dates: start: 20080701, end: 20100501
  3. PHENERGAN [Concomitant]
     Indication: NAUSEA
  4. NEXIUM [Concomitant]
     Indication: PRODUCT USED FOR UNKNOWN INDICATION
     Dosage: DAILY
     Route: 048
  5. PREDNISONE [Concomitant]
     Indication: CROHN'S DISEASE
  6. ZOFRAN [Concomitant]
     Indication: NAUSEA
  7. LORCET-HD [Concomitant]
     Indication: PAIN
  8. PENTASA [Concomitant]
     Indication: PRODUCT USED FOR UNKNOWN INDICATION
  9. LASIX [Concomitant]
     Indication: OEDEMA

REACTIONS (2)
  - STAPHYLOCOCCAL INFECTION [None]
  - INJECTION SITE PAIN [None]
